FAERS Safety Report 16768004 (Version 1)
Quarter: 2019Q3

REPORT INFORMATION
  Report Type: Spontaneous
  Country: SA (occurrence: SA)
  Receive Date: 20190903
  Receipt Date: 20190903
  Transmission Date: 20191005
  Serious: Yes (Other)
  Sender: FDA-Public Use
  Company Number: SA-CMP PHARMA-2019CMP00018

PATIENT
  Age: 19 Year
  Sex: Male

DRUGS (1)
  1. HYDROCORTISONE. [Suspect]
     Active Substance: HYDROCORTISONE
     Indication: PSORIASIS
     Dosage: USING IT ^EXCESSIVELY^
     Route: 061

REACTIONS (2)
  - Idiopathic intracranial hypertension [Recovered/Resolved]
  - Overdose [Recovered/Resolved]
